FAERS Safety Report 11930312 (Version 1)
Quarter: 2016Q1

REPORT INFORMATION
  Report Type: Spontaneous
  Country: US (occurrence: US)
  Receive Date: 20160120
  Receipt Date: 20160120
  Transmission Date: 20160526
  Serious: Yes (Other)
  Sender: FDA-Public Use
  Company Number: US-GLAXOSMITHKLINE-US2016005408

PATIENT
  Age: 66 Year
  Sex: Female

DRUGS (1)
  1. SENSODYNE ORIGINAL FLAVOR [Suspect]
     Active Substance: POTASSIUM NITRATE\SODIUM FLUORIDE
     Indication: SENSITIVITY OF TEETH
     Dosage: UNK
     Dates: start: 1999, end: 20151118

REACTIONS (9)
  - Cough [Not Recovered/Not Resolved]
  - Retching [Not Recovered/Not Resolved]
  - Dysphonia [Not Recovered/Not Resolved]
  - Macular hole [Not Recovered/Not Resolved]
  - Throat tightness [Not Recovered/Not Resolved]
  - Aphonia [Not Recovered/Not Resolved]
  - Hypersensitivity [Not Recovered/Not Resolved]
  - Axillary mass [Not Recovered/Not Resolved]
  - Dyspnoea [Not Recovered/Not Resolved]

NARRATIVE: CASE EVENT DATE: 1999
